FAERS Safety Report 8236757-1 (Version None)
Quarter: 2012Q1

REPORT INFORMATION
  Report Type: 
  Country: None (occurrence: None)
  Receive Date: 20120309
  Receipt Date: 20120309
  Transmission Date: 20120608
  Serious: Yes (Other)
  Sender: FDA-Public Use
  Company Number: PHHY2010US26792

PATIENT
  Age: 61 Year
  Sex: Female

DRUGS (6)
  1. LEVODOPA-CARBIDOPA (CARBIDOPA, LEVODOPA) [Concomitant]
  2. EXTAVIA [Suspect]
     Indication: MULTIPLE SCLEROSIS
     Dosage: 0.25 MG,QOD, SUBCUTANEOUS
     Route: 058
     Dates: start: 20100421
  3. VITAMIN B12 [Concomitant]
  4. PAXIL [Concomitant]
  5. VITAMIN A [Concomitant]
  6. VITAMIN D [Concomitant]

REACTIONS (5)
  - INSOMNIA [None]
  - DEPRESSED MOOD [None]
  - TREMOR [None]
  - DEPRESSION [None]
  - CRYING [None]
